FAERS Safety Report 5754290-3 (Version None)
Quarter: 2008Q2

REPORT INFORMATION
  Report Type: 
  Country: None (occurrence: None)
  Receive Date: 20080530
  Receipt Date: 20080520
  Transmission Date: 20081010
  Serious: Yes (Hospitalization, Other)
  Sender: FDA-Public Use
  Company Number: US-PFIZER INC-2007082572

PATIENT
  Sex: Male
  Weight: 96.8 kg

DRUGS (4)
  1. CHANTIX [Suspect]
     Indication: SMOKING CESSATION THERAPY
     Dosage: TEXT:EVERY DAY
     Route: 048
  2. METHADONE HCL [Concomitant]
     Route: 048
  3. VALIUM [Concomitant]
     Route: 048
  4. LORTAB [Concomitant]
     Route: 048

REACTIONS (8)
  - ASTHENIA [None]
  - COORDINATION ABNORMAL [None]
  - FALL [None]
  - FEAR [None]
  - GAIT DISTURBANCE [None]
  - INAPPROPRIATE SCHEDULE OF DRUG ADMINISTRATION [None]
  - NERVOUSNESS [None]
  - SCHIZOPHRENIA, PARANOID TYPE [None]
